FAERS Safety Report 11060797 (Version 1)
Quarter: 2015Q2

REPORT INFORMATION
  Report Type: Report from Study
  Country: AU (occurrence: AU)
  Receive Date: 20150423
  Receipt Date: 20150423
  Transmission Date: 20150821
  Serious: Yes (Hospitalization)
  Sender: FDA-Public Use
  Company Number: AU-BRISTOL-MYERS SQUIBB COMPANY-15558414

PATIENT
  Age: 67 Year
  Sex: Male

DRUGS (1)
  1. IPILIMUMAB [Suspect]
     Active Substance: IPILIMUMAB
     Indication: PROSTATE CANCER
     Dosage: NO OF COURSE-4,24JAN2011-14FEB2011
     Route: 042
     Dates: start: 20110124, end: 20110328

REACTIONS (4)
  - Hepatitis [Recovered/Resolved]
  - Dermatitis exfoliative [Recovered/Resolved]
  - Diarrhoea [Recovered/Resolved]
  - Rash morbilliform [Recovered/Resolved]

NARRATIVE: CASE EVENT DATE: 20110217
